FAERS Safety Report 4505172-6 (Version None)
Quarter: 2004Q4

REPORT INFORMATION
  Report Type: 
  Country: None (occurrence: None)
  Receive Date: 20041018
  Receipt Date: 20040628
  Transmission Date: 20050328
  Serious: Yes (Hospitalization, Other)
  Sender: FDA-Public Use
  Company Number: 2003119226

PATIENT
  Age: 52 Year
  Sex: Male

DRUGS (5)
  1. GEODON [Suspect]
     Dosage: 10 MG, INTRAMUSCULAR
     Route: 030
  2. COCAINE (COCAINE) [Suspect]
  3. OPIOIDS (OPIOIDS) [Suspect]
  4. LORAZEPAM [Concomitant]
  5. BENZODIAZEPINE DERIVATIVES (BENZODIAZEPINE DERIVATIVES) [Concomitant]

REACTIONS (1)
  - HYPOTENSION [None]
